FAERS Safety Report 5009437-3 (Version None)
Quarter: 2006Q2

REPORT INFORMATION
  Report Type: 
  Country: None (occurrence: None)
  Receive Date: 20060524
  Receipt Date: 20060515
  Transmission Date: 20061013
  Serious: Yes (Congenital Anomaly)
  Sender: FDA-Public Use
  Company Number: PHBS2006CA07363

PATIENT
  Age: 1 Day
  Sex: Male
  Weight: 3.566 kg

DRUGS (2)
  1. LETROZOLE [Suspect]
     Route: 064
  2. PROGESTERONE [Suspect]
     Route: 064

REACTIONS (2)
  - DRUG EXPOSURE BEFORE PREGNANCY [None]
  - HYPOSPADIAS [None]
